FAERS Safety Report 13671346 (Version 1)
Quarter: 2017Q2

REPORT INFORMATION
  Report Type: Spontaneous
  Country: US (occurrence: US)
  Receive Date: 20170620
  Receipt Date: 20170620
  Transmission Date: 20170830
  Serious: No
  Sender: FDA-Public Use
  Company Number: US-ROCHE-1420830

PATIENT
  Sex: Male
  Weight: 61.29 kg

DRUGS (15)
  1. NORVASC [Concomitant]
     Active Substance: AMLODIPINE BESYLATE
  2. CELEXA [Concomitant]
     Active Substance: CITALOPRAM HYDROBROMIDE
  3. IMODIUM [Concomitant]
     Active Substance: LOPERAMIDE HYDROCHLORIDE
  4. XELODA [Suspect]
     Active Substance: CAPECITABINE
     Indication: COLON CANCER
     Dosage: 2 BID
     Route: 048
     Dates: start: 20140313
  5. ZOFRAN [Concomitant]
     Active Substance: ONDANSETRON HYDROCHLORIDE
  6. RAPAFLO [Concomitant]
     Active Substance: SILODOSIN
  7. AMLODIPINE BESYLATE. [Concomitant]
     Active Substance: AMLODIPINE BESYLATE
  8. LEUCOVORIN. [Concomitant]
     Active Substance: LEUCOVORIN
  9. SODIUM CHLORIDE. [Concomitant]
     Active Substance: SODIUM CHLORIDE
  10. XANAX [Concomitant]
     Active Substance: ALPRAZOLAM
  11. ASPIRIN. [Concomitant]
     Active Substance: ASPIRIN
  12. FLUOROURACIL. [Concomitant]
     Active Substance: FLUOROURACIL
  13. ENALAPRIL [Concomitant]
     Active Substance: ENALAPRIL
  14. VITAMIN B12 [Concomitant]
     Active Substance: CYANOCOBALAMIN
  15. DEXAMETHASONE. [Concomitant]
     Active Substance: DEXAMETHASONE

REACTIONS (1)
  - Skin fissures [Unknown]
